FAERS Safety Report 4299985-6 (Version None)
Quarter: 2004Q1

REPORT INFORMATION
  Report Type: 
  Country: None (occurrence: None)
  Receive Date: 20040218
  Receipt Date: 20040211
  Transmission Date: 20041129
  Serious: Yes (Other)
  Sender: FDA-Public Use
  Company Number: K200400176

PATIENT
  Sex: Female

DRUGS (7)
  1. ALTACE [Suspect]
     Indication: HYPERTENSION
     Dosage: 1.25 MG QD ORAL
     Route: 048
     Dates: start: 20040115, end: 20040123
  2. BENDROFLUAZIDE [Concomitant]
  3. CO-DYDRAMOL (DIHYDROCODEINE BITARTRATE, PARACETAMOL) [Concomitant]
  4. METFORMIN [Concomitant]
  5. MICRONOR [Concomitant]
  6. SERTRALINE HCL [Concomitant]
  7. THYROXINE ^APS^ (LEVOTHYROXINE SODIUM) [Concomitant]

REACTIONS (3)
  - CHEST DISCOMFORT [None]
  - DYSPNOEA [None]
  - TACHYCARDIA [None]
